FAERS Safety Report 5444565-X (Version None)
Quarter: 2007Q3

REPORT INFORMATION
  Report Type: 
  Country: None (occurrence: None)
  Receive Date: 20070906
  Receipt Date: 20070831
  Transmission Date: 20080115
  Serious: Yes (Other)
  Sender: FDA-Public Use
  Company Number: US-ASTRAZENECA-2007UW20717

PATIENT
  Age: 703 Month
  Sex: Male
  Weight: 81.6 kg

DRUGS (7)
  1. CRESTOR [Suspect]
     Route: 048
     Dates: start: 20050101
  2. ZETIA [Concomitant]
  3. PLAVIX [Concomitant]
  4. METOPROLOL SUCCINATE [Concomitant]
  5. LISINOPRIL [Concomitant]
  6. FOLTX [Concomitant]
  7. ASPIRIN [Concomitant]

REACTIONS (3)
  - DISORIENTATION [None]
  - LOSS OF CONSCIOUSNESS [None]
  - UNRESPONSIVE TO STIMULI [None]
